FAERS Safety Report 25985065 (Version 1)
Quarter: 2025Q4

REPORT INFORMATION
  Report Type: Spontaneous
  Country: US (occurrence: US)
  Receive Date: 20251031
  Receipt Date: 20251031
  Transmission Date: 20260117
  Serious: Yes (Other)
  Sender: Kenvue
  Company Number: US-KENVUE-20251008751

PATIENT

DRUGS (14)
  1. IBUPROFEN [Suspect]
     Active Substance: IBUPROFEN
     Indication: Product used for unknown indication
     Route: 065
  2. LIDOCAINE [Concomitant]
     Active Substance: LIDOCAINE
     Indication: Arrhythmia
     Route: 065
  3. ADENOSINE [Concomitant]
     Active Substance: ADENOSINE
     Indication: Arrhythmia
     Route: 065
  4. AMIODARONE [Concomitant]
     Active Substance: AMIODARONE
     Indication: Arrhythmia
     Route: 065
  5. FLECAINIDE [Concomitant]
     Active Substance: FLECAINIDE
     Indication: Arrhythmia
     Route: 065
  6. PROPAFENONE [Concomitant]
     Active Substance: PROPAFENONE
     Indication: Arrhythmia
     Route: 065
  7. MEXILETINE [Concomitant]
     Active Substance: MEXILETINE
     Indication: Arrhythmia
     Route: 065
  8. DRONEDARONE [Concomitant]
     Active Substance: DRONEDARONE
     Indication: Arrhythmia
     Route: 065
  9. DOFETILIDE [Concomitant]
     Active Substance: DOFETILIDE
     Indication: Arrhythmia
     Route: 065
  10. QUINIDINE [Concomitant]
     Active Substance: QUINIDINE
     Indication: Arrhythmia
     Route: 065
  11. IBUTILIDE [Concomitant]
     Active Substance: IBUTILIDE
     Indication: Arrhythmia
     Route: 065
  12. PROCAINAMIDE HYDROCHLORIDE [Concomitant]
     Active Substance: PROCAINAMIDE HYDROCHLORIDE
     Indication: Arrhythmia
     Route: 065
  13. DISOPYRAMIDE [Concomitant]
     Active Substance: DISOPYRAMIDE
     Indication: Arrhythmia
     Route: 065
  14. UNSPECIFIED INGREDIENT [Concomitant]
     Active Substance: UNSPECIFIED INGREDIENT
     Indication: Product used for unknown indication
     Route: 065

REACTIONS (6)
  - Atrial fibrillation [Unknown]
  - Ventricular tachycardia [Unknown]
  - Ventricular fibrillation [Unknown]
  - Atrial flutter [Unknown]
  - Tachycardia paroxysmal [Unknown]
  - Extrasystoles [Unknown]
